FAERS Safety Report 6677648-7 (Version None)
Quarter: 2010Q2

REPORT INFORMATION
  Report Type: 
  Country: None (occurrence: None)
  Receive Date: 20100412
  Receipt Date: 20100226
  Transmission Date: 20101027
  Serious: No
  Sender: FDA-Public Use
  Company Number: US-ALEXION-A201000231

PATIENT
  Sex: Female

DRUGS (15)
  1. SOLIRIS [Suspect]
     Indication: PAROXYSMAL NOCTURNAL HAEMOGLOBINURIA
     Dosage: 600 MG, QW
     Route: 042
     Dates: start: 20080229, end: 20080321
  2. SOLIRIS [Suspect]
     Dosage: 900 MG, Q2W
     Route: 042
     Dates: start: 20080328, end: 20090924
  3. SOLIRIS [Suspect]
     Dosage: 900 MG, Q12D
     Route: 042
     Dates: start: 20091006
  4. VITAMIN B COMPLEX                  /00003501/ [Concomitant]
     Dosage: UNK
     Route: 048
  5. AMOXICILLIN                        /00249602/ [Concomitant]
     Indication: PROPHYLAXIS
     Dosage: 500 MG, PRN
     Route: 048
  6. COUMADIN [Concomitant]
     Dosage: 5.5 MG, QOD
     Route: 048
  7. COUMADIN [Concomitant]
     Dosage: 7.5 MG, QOD
     Route: 048
  8. FISH OIL [Concomitant]
     Dosage: 1, QD
     Route: 048
  9. FOLIC ACID [Concomitant]
     Dosage: 1 MG, QD
     Route: 048
  10. LACTAID [Concomitant]
     Dosage: 6000 IU, TID W/MEAL
     Route: 048
  11. LOESTRIN 1.5/30 [Concomitant]
     Dosage: 0.02 MG, QD
     Route: 048
  12. MULTIVITAMIN                       /00831701/ [Concomitant]
     Dosage: UNK
     Route: 048
  13. VITAMIN A [Concomitant]
     Dosage: 1000 IU, BID
     Route: 048
  14. SIMETHICONE [Concomitant]
     Dosage: 125 MG, PRN
     Route: 048
  15. TYLENOL (CAPLET) [Concomitant]
     Dosage: 1000 MG, PRN
     Route: 048

REACTIONS (3)
  - HEADACHE [None]
  - NAUSEA [None]
  - VOMITING [None]
